FAERS Safety Report 20690291 (Version 1)
Quarter: 2022Q2

REPORT INFORMATION
  Report Type: Spontaneous
  Country: SE (occurrence: SE)
  Receive Date: 20220408
  Receipt Date: 20220408
  Transmission Date: 20220720
  Serious: Yes (Other)
  Sender: FDA-Public Use
  Company Number: None

PATIENT
  Age: 66 Year
  Sex: Female

DRUGS (1)
  1. DIAZEPAM [Suspect]
     Active Substance: DIAZEPAM
     Indication: Magnetic resonance imaging
     Dosage: BP FORM STRENGTH 5 MG / ML SOLUTION FOR INJECTION, FREQUENCY TIME 1 TOTAL, UNIT DOSE 1 ML
     Route: 042
     Dates: start: 20220318, end: 20220318

REACTIONS (1)
  - Injection site pain [Unknown]

NARRATIVE: CASE EVENT DATE: 20220318
